FAERS Safety Report 6057665-0 (Version None)
Quarter: 2009Q1

REPORT INFORMATION
  Report Type: 
  Country: None (occurrence: None)
  Receive Date: 20090129
  Receipt Date: 20090118
  Transmission Date: 20090719
  Serious: Yes (Death, Hospitalization, Other)
  Sender: FDA-Public Use
  Company Number: PH-BAXTER-2009BH000154

PATIENT
  Age: 24 Year
  Sex: Male

DRUGS (1)
  1. DIANEAL [Suspect]
     Indication: RENAL DISORDER
     Route: 033
     Dates: start: 20080331, end: 20090105

REACTIONS (4)
  - ARRHYTHMIA [None]
  - DYSPNOEA [None]
  - HYPERKALAEMIA [None]
  - SUDDEN CARDIAC DEATH [None]
